FAERS Safety Report 7035973-4 (Version None)
Quarter: 2010Q4

REPORT INFORMATION
  Report Type: 
  Country: None (occurrence: None)
  Receive Date: 20101008
  Receipt Date: 20100930
  Transmission Date: 20110411
  Serious: Yes (Other)
  Sender: FDA-Public Use
  Company Number: JP-BAYER-201014181BYL

PATIENT
  Age: 73 Year
  Sex: Male
  Weight: 68 kg

DRUGS (10)
  1. NEXAVAR [Suspect]
     Indication: HEPATIC NEOPLASM MALIGNANT
     Dosage: UNIT DOSE: 200 MG
     Route: 048
     Dates: start: 20100717
  2. PARIET [Concomitant]
     Route: 048
     Dates: start: 20070101
  3. AZELASTINE HCL [Concomitant]
     Route: 048
     Dates: start: 20070101
  4. LASIX [Concomitant]
     Route: 065
     Dates: start: 20091028
  5. NU-LOTAN [Concomitant]
     Route: 048
     Dates: start: 20100301
  6. URSO 250 [Concomitant]
     Route: 048
     Dates: start: 20070101
  7. PROMAC [Concomitant]
     Route: 048
     Dates: start: 20090101
  8. MIYA BM [Concomitant]
     Indication: DIARRHOEA
     Route: 048
     Dates: start: 20100701
  9. HUMALOG [Concomitant]
     Route: 042
     Dates: start: 20070101
  10. LANTUS [Concomitant]
     Route: 042
     Dates: start: 20090101

REACTIONS (4)
  - DIARRHOEA [None]
  - FATIGUE [None]
  - PALMAR-PLANTAR ERYTHRODYSAESTHESIA SYNDROME [None]
  - TOXIC ENCEPHALOPATHY [None]
